FAERS Safety Report 4654622-3 (Version None)
Quarter: 2005Q2

REPORT INFORMATION
  Report Type: 
  Country: None (occurrence: None)
  Receive Date: 20050503
  Receipt Date: 20050503
  Transmission Date: 20051028
  Serious: Yes (Life-Threatening)
  Sender: FDA-Public Use
  Company Number: None

PATIENT
  Age: 45 Year
  Sex: Male
  Weight: 212 kg

DRUGS (13)
  1. LISINOPRIL [Suspect]
     Indication: HYPERTENSION
     Dosage: 20 MG    DAILY   ORAL
     Route: 048
     Dates: start: 20050428, end: 20050501
  2. CEFAZOLIN [Suspect]
     Indication: INFECTION PROPHYLAXIS
     Dosage: 1 GRAM    EVERY 8 HRS INTRAVENOU
     Route: 042
     Dates: start: 20050427, end: 20050501
  3. CEFAZOLIN [Suspect]
     Indication: POSTOPERATIVE CARE
     Dosage: 1 GRAM    EVERY 8 HRS INTRAVENOU
     Route: 042
     Dates: start: 20050427, end: 20050501
  4. REGULAR INSULIN [Concomitant]
  5. METFORMIN HCL [Concomitant]
  6. GLYBURIDE [Concomitant]
  7. FUROSEMIDE [Concomitant]
  8. FERROUS SULFATE TAB [Concomitant]
  9. DALTEPARIN [Concomitant]
  10. KETOCONAZOLE [Concomitant]
  11. METHYLPREDNISOLONE [Concomitant]
  12. FAMOTIDINE [Concomitant]
  13. COZAAR [Concomitant]

REACTIONS (1)
  - ANGIONEUROTIC OEDEMA [None]
